APPROVED DRUG PRODUCT: PROCHLORPERAZINE EDISYLATE
Active Ingredient: PROCHLORPERAZINE EDISYLATE
Strength: EQ 5MG BASE/ML
Dosage Form/Route: INJECTABLE;INJECTION
Application: A040505 | Product #001
Applicant: TEVA PARENTERAL MEDICINES INC
Approved: May 30, 2003 | RLD: No | RS: No | Type: DISCN